FAERS Safety Report 10575051 (Version 2)
Quarter: 2014Q4

REPORT INFORMATION
  Report Type: Spontaneous
  Country: PT (occurrence: PT)
  Receive Date: 20141111
  Receipt Date: 20141122
  Transmission Date: 20150529
  Serious: Yes (Death, Hospitalization)
  Sender: FDA-Public Use
  Company Number: PT-ROCHE-1486204

PATIENT
  Age: 78 Year
  Sex: Male

DRUGS (1)
  1. ALTEPLASE [Suspect]
     Active Substance: ALTEPLASE
     Indication: ISCHAEMIC STROKE
     Route: 042

REACTIONS (6)
  - Peritoneal haemorrhage [Fatal]
  - Fatigue [Unknown]
  - Anuria [Unknown]
  - Dyspnoea [Unknown]
  - Abdominal distension [Unknown]
  - Haemoglobin decreased [Unknown]
